FAERS Safety Report 4342561-7 (Version None)
Quarter: 2004Q2

REPORT INFORMATION
  Report Type: 
  Country: None (occurrence: None)
  Receive Date: 20040416
  Receipt Date: 20040408
  Transmission Date: 20050107
  Serious: Yes (Hospitalization, Congenital Anomaly)
  Sender: FDA-Public Use
  Company Number: 2004024425

PATIENT
  Sex: Female

DRUGS (3)
  1. TAHOR (ATORVASTATIN) [Suspect]
     Indication: ILL-DEFINED DISORDER
     Dosage: ORAL; LONG TIME
     Route: 048
  2. ZOPLICONE (ZOPLICONE) [Suspect]
     Indication: ILL-DEFINED DISORDER
     Dosage: (EVERY 2 OR 3 DAYS), ORAL
     Route: 048
  3. PANTOPRAZOLE (PANTOPRAZOLE) [Suspect]
     Indication: ILL-DEFINED DISORDER
     Dosage: (DAILY), ORAL;  A LONG TIME
     Route: 048

REACTIONS (5)
  - ABORTION INDUCED [None]
  - ARNOLD-CHIARI MALFORMATION [None]
  - COMPLICATIONS OF MATERNAL EXPOSURE TO THERAPEUTIC DRUGS [None]
  - MATERNAL DRUGS AFFECTING FOETUS [None]
  - MENINGOMYELOCELE [None]
